FAERS Safety Report 6714530-0 (Version None)
Quarter: 2010Q2

REPORT INFORMATION
  Report Type: 
  Country: None (occurrence: None)
  Receive Date: 20100506
  Receipt Date: 20100503
  Transmission Date: 20101027
  Serious: Yes (Death)
  Sender: FDA-Public Use
  Company Number: US-GILEAD-2010-0028781

PATIENT
  Sex: Female

DRUGS (22)
  1. LETAIRIS [Suspect]
     Indication: PULMONARY ARTERIAL HYPERTENSION
     Route: 048
     Dates: start: 20090410, end: 20100422
  2. LETAIRIS [Suspect]
     Dates: start: 20080430, end: 20090409
  3. SOLATOL [Concomitant]
     Dates: start: 20100420
  4. SIMVASTATIN [Concomitant]
     Dates: start: 20100122
  5. DILTIAZEM HCL [Concomitant]
     Dates: start: 20091030
  6. METOPROLOL TARTRATE [Concomitant]
     Dates: start: 20090613
  7. ATORVASTATIN [Concomitant]
     Dates: start: 20100420
  8. NITROGLYCERIN [Concomitant]
     Dates: start: 20090423
  9. SPIRONOLACTONE [Concomitant]
     Dates: start: 20100322
  10. FUROSEMIDE [Concomitant]
     Dates: start: 20100122
  11. MYCOPHENOLATE MOFETIL [Concomitant]
     Dates: start: 20090831
  12. ALBUTEROL [Concomitant]
     Dates: start: 20100101
  13. FLUTICASONE PROPIONATE [Concomitant]
     Dates: start: 20090508
  14. ATOVAQUONE [Concomitant]
     Dates: start: 20091222
  15. MOXIFLOXACIN HCL [Concomitant]
     Dates: start: 20100420
  16. DAPSONE [Concomitant]
     Dates: start: 20100322
  17. PREDNISONE [Concomitant]
     Dates: start: 20091030
  18. HYDROCORTISONE [Concomitant]
     Dates: start: 20060308
  19. PROTONIX [Concomitant]
     Dates: start: 20090508
  20. CALCIUM CARBONATE-VITAMIN D2 [Concomitant]
     Dates: start: 20091222
  21. POTASSIUM CHLORIDE [Concomitant]
     Dates: start: 20100228
  22. ARTIFICIAL SALIVA [Concomitant]

REACTIONS (1)
  - RESPIRATORY FAILURE [None]
